FAERS Safety Report 11203994 (Version 1)
Quarter: 2015Q2

REPORT INFORMATION
  Report Type: Spontaneous
  Country: US (occurrence: US)
  Receive Date: 20150619
  Receipt Date: 20150619
  Transmission Date: 20150821
  Serious: No
  Sender: FDA-Public Use
  Company Number: US-009507513-1505USA015038

PATIENT
  Sex: Female

DRUGS (8)
  1. BENZTROPINE MESYLATE. [Suspect]
     Active Substance: BENZTROPINE MESYLATE
     Dosage: UNK
     Route: 048
  2. TRILAFON [Suspect]
     Active Substance: PERPHENAZINE
     Dosage: UNK
     Route: 048
  3. LASIX [Suspect]
     Active Substance: FUROSEMIDE
     Dosage: UNK
  4. POTASSIUM (UNSPECIFIED) [Suspect]
     Active Substance: POTASSIUM
     Dosage: UNK
  5. HALDOL [Suspect]
     Active Substance: HALOPERIDOL
     Dosage: 5 MG, TWICE A DAY
  6. CYANOCOBALAMIN. [Suspect]
     Active Substance: CYANOCOBALAMIN
     Dosage: UNK
  7. VITAMINS (UNSPECIFIED) [Suspect]
     Active Substance: VITAMINS
     Dosage: UNK
  8. VITAMIN D [Suspect]
     Active Substance: CHOLECALCIFEROL
     Dosage: UNK

REACTIONS (1)
  - Vulvovaginal dryness [Unknown]
